FAERS Safety Report 4589012-5 (Version None)
Quarter: 2005Q1

REPORT INFORMATION
  Report Type: 
  Country: None (occurrence: None)
  Receive Date: 20050222
  Receipt Date: 20050215
  Transmission Date: 20050727
  Serious: Yes (Disabling)
  Sender: FDA-Public Use
  Company Number: US-MERCK-0502USA02093

PATIENT
  Age: 60 Year
  Sex: Male

DRUGS (4)
  1. ZOCOR [Suspect]
     Indication: BLOOD CHOLESTEROL INCREASED
     Route: 048
     Dates: start: 20030101, end: 20040201
  2. ZOCOR [Suspect]
     Route: 048
     Dates: start: 20040201, end: 20050214
  3. NEXIUM [Concomitant]
     Route: 065
  4. ALLEGRA [Concomitant]
     Route: 065

REACTIONS (3)
  - DIARRHOEA [None]
  - MUSCLE ATROPHY [None]
  - MYALGIA [None]
